FAERS Safety Report 4817570-1 (Version None)
Quarter: 2005Q4

REPORT INFORMATION
  Report Type: 
  Country: None (occurrence: None)
  Receive Date: 20051031
  Receipt Date: 20051024
  Transmission Date: 20060501
  Serious: Yes (Death, Hospitalization)
  Sender: FDA-Public Use
  Company Number: ST-2005-008654

PATIENT
  Age: 71 Year
  Sex: Female
  Weight: 33.5 kg

DRUGS (8)
  1. OLMETEC [Suspect]
     Indication: ESSENTIAL HYPERTENSION
     Dosage: 10 MG QD PO
     Route: 048
     Dates: start: 20041220, end: 20050216
  2. LOXONIN [Suspect]
     Dosage: 60 MG TID PO
     Route: 048
  3. PREDONINE [Suspect]
     Dosage: 5 MG QD PO
     Route: 048
  4. RIMATIL [Suspect]
     Dosage: 100 MG BID PO
     Route: 048
  5. ALINAMIN [Concomitant]
  6. ALANTA [Concomitant]
  7. EPADEL [Concomitant]
  8. DORNER [Concomitant]

REACTIONS (4)
  - EXTREMITY NECROSIS [None]
  - LEG AMPUTATION [None]
  - POSTOPERATIVE FEVER [None]
  - SKIN ULCER [None]
